FAERS Safety Report 6143776-8 (Version None)
Quarter: 2009Q2

REPORT INFORMATION
  Report Type: 
  Country: None (occurrence: None)
  Receive Date: 20090403
  Receipt Date: 20090326
  Transmission Date: 20091009
  Serious: Yes (Other)
  Sender: FDA-Public Use
  Company Number: PHHY2009BR11571

PATIENT
  Age: 85 Year
  Sex: Female

DRUGS (2)
  1. EXELON [Suspect]
     Dosage: 3 MG
  2. EXELON [Suspect]
     Dosage: 6 MG

REACTIONS (3)
  - DYSENTERY [None]
  - MALAISE [None]
  - VOMITING [None]
